FAERS Safety Report 5308705-5 (Version None)
Quarter: 2007Q2

REPORT INFORMATION
  Report Type: 
  Country: None (occurrence: None)
  Receive Date: 20070426
  Receipt Date: 20070420
  Transmission Date: 20071010
  Serious: Yes (Life-Threatening, Hospitalization)
  Sender: FDA-Public Use
  Company Number: 20070204557

PATIENT
  Age: 57 Year
  Sex: Male
  Weight: 82 kg

DRUGS (15)
  1. DARUNAVIR [Suspect]
     Indication: HIV INFECTION
     Dosage: 600MG TWICE PER DAY
     Route: 048
     Dates: start: 20070103, end: 20070212
  2. RITONAVIR [Suspect]
     Indication: HIV INFECTION
     Dosage: 100MG TWICE PER DAY
     Route: 048
     Dates: start: 20070103, end: 20070212
  3. TENOFOVIR [Suspect]
     Indication: HIV INFECTION
     Dosage: 300MG PER DAY
     Route: 048
     Dates: start: 20070103, end: 20070212
  4. METFORMIN [Suspect]
     Indication: DIABETES MELLITUS
  5. ABACAVIR SULFATE [Suspect]
     Indication: HIV INFECTION
  6. ENFUVIRTIDE [Concomitant]
     Indication: HIV INFECTION
  7. BACTRIM [Concomitant]
  8. FENOFIBRATE [Concomitant]
     Dosage: 200MG PER DAY
  9. TRAZODONE HCL [Concomitant]
  10. ZOPICLONE [Concomitant]
  11. ATORVASTATIN CALCIUM [Concomitant]
  12. LEVOTHYROXIN SODIUM [Concomitant]
     Dosage: .1MG PER DAY
  13. ROSIGLITAZONE MALEATE [Concomitant]
     Dosage: 4MG PER DAY
  14. QUININE [Concomitant]
     Dosage: 300MG THREE TIMES PER DAY
  15. FOLIC ACID [Concomitant]
     Dosage: 5MG PER DAY

REACTIONS (8)
  - DEHYDRATION [None]
  - DIARRHOEA [None]
  - HAEMODIALYSIS [None]
  - HYPERKALAEMIA [None]
  - LACTIC ACIDOSIS [None]
  - MALAISE [None]
  - RENAL FAILURE ACUTE [None]
  - URINE OUTPUT DECREASED [None]
